FAERS Safety Report 17105906 (Version 1)
Quarter: 2019Q4

REPORT INFORMATION
  Report Type: Spontaneous
  Country: CN (occurrence: CN)
  Receive Date: 20191203
  Receipt Date: 20191203
  Transmission Date: 20200122
  Serious: Yes (Other)
  Sender: FDA-Public Use
  Company Number: CN-PFIZER INC-2019516277

PATIENT
  Age: 15 Year
  Sex: Male
  Weight: 75 kg

DRUGS (8)
  1. LINEZOLID. [Suspect]
     Active Substance: LINEZOLID
     Indication: PNEUMONIA
     Dosage: 0.6 G, 2X/DAY
     Route: 041
     Dates: start: 20191104, end: 20191111
  2. SODIUM CHLORIDE. [Concomitant]
     Active Substance: SODIUM CHLORIDE
     Dosage: 100 ML, 3X/DAY
     Route: 041
     Dates: start: 20191107, end: 20191109
  3. SODIUM CHLORIDE. [Concomitant]
     Active Substance: SODIUM CHLORIDE
     Indication: VEHICLE SOLUTION USE
     Dosage: 250 ML, 1X/DAY
     Route: 041
     Dates: start: 20191103, end: 20191110
  4. FENG TAI LING [Suspect]
     Active Substance: PIPERACILLIN SODIUM\TAZOBACTAM SODIUM
     Indication: PNEUMONIA
     Dosage: 4.5 G, 3X/DAY
     Route: 041
     Dates: start: 20191107, end: 20191109
  5. XINGNAOJING [Suspect]
     Active Substance: HERBALS
     Indication: ENCEPHALITIS
     Dosage: 20 ML, 1X/DAY
     Route: 041
     Dates: start: 20191103, end: 20191110
  6. LEVOGLUTAMIDE/SODIUM GUALENATE [Suspect]
     Active Substance: GLUTAMINE\SODIUM GUALENATE
     Indication: THERAPEUTIC PROCEDURE
     Dosage: 0.67 G, 3X/DAY
     Route: 045
     Dates: start: 20191108, end: 20191113
  7. SODIUM VALPROATE [Suspect]
     Active Substance: VALPROATE SODIUM
     Indication: EPILEPSY
     Dosage: 0.4 G, 3X/DAY
     Route: 045
     Dates: start: 20191102, end: 20191112
  8. RABEPRAZOLE SODIUM. [Suspect]
     Active Substance: RABEPRAZOLE SODIUM
     Indication: THERAPEUTIC PROCEDURE
     Dosage: 20 MG, 1X/DAY
     Route: 045
     Dates: start: 20191103, end: 20191112

REACTIONS (1)
  - Drug eruption [Recovering/Resolving]

NARRATIVE: CASE EVENT DATE: 20191109
